FAERS Safety Report 5146879-X (Version None)
Quarter: 2006Q4

REPORT INFORMATION
  Report Type: 
  Country: None (occurrence: None)
  Receive Date: 20061109
  Receipt Date: 20061031
  Transmission Date: 20070319
  Serious: Yes (Hospitalization)
  Sender: FDA-Public Use
  Company Number: FR-GLAXOSMITHKLINE-B0445140A

PATIENT
  Age: 72 Year
  Sex: Female

DRUGS (4)
  1. AVANDAMET [Suspect]
     Indication: DIABETES MELLITUS NON-INSULIN-DEPENDENT
     Dosage: 2TAB PER DAY
     Route: 048
     Dates: start: 20060301
  2. METFORMIN [Suspect]
     Indication: DIABETES MELLITUS NON-INSULIN-DEPENDENT
     Route: 048
  3. BETA BLOCKER [Concomitant]
     Route: 065
  4. COZAAR [Concomitant]
     Route: 065

REACTIONS (4)
  - ANOREXIA [None]
  - DYSGEUSIA [None]
  - FATIGUE [None]
  - OEDEMA [None]
